FAERS Safety Report 12442965 (Version 1)
Quarter: 2016Q2

REPORT INFORMATION
  Report Type: Spontaneous
  Country: US (occurrence: None)
  Receive Date: 20160606
  Receipt Date: 20160606
  Transmission Date: 20160815
  Serious: No
  Sender: FDA-Public Use
  Company Number: None

PATIENT
  Age: 36 Year
  Sex: Male
  Weight: 79.38 kg

DRUGS (3)
  1. CHLORHEXIDINE [Concomitant]
     Active Substance: CHLORHEXIDINE
  2. AMOXICILLIN 500MG [Suspect]
     Active Substance: AMOXICILLIN
     Indication: GINGIVITIS
     Route: 048
     Dates: start: 20160602, end: 20160603
  3. KLAIRE LABS PROBIOTIC [Concomitant]

REACTIONS (4)
  - Fatigue [None]
  - Lethargy [None]
  - Abdominal pain [None]
  - Asthenia [None]

NARRATIVE: CASE EVENT DATE: 20160602
